FAERS Safety Report 7117977-6 (Version None)
Quarter: 2010Q4

REPORT INFORMATION
  Report Type: 
  Country: None (occurrence: None)
  Receive Date: 20101118
  Receipt Date: 20101118
  Transmission Date: 20110411
  Serious: Yes (Other)
  Sender: FDA-Public Use
  Company Number: None

PATIENT
  Age: 4 Month
  Sex: Female
  Weight: 5.4432 kg

DRUGS (2)
  1. FLUCONAZOLE [Suspect]
     Indication: CANDIDIASIS
     Dosage: .8 AND .4 ML 1X A DAY FOR 14 D
     Dates: start: 20101025, end: 20101104
  2. FLUCONAZOLE [Suspect]
     Indication: CANDIDIASIS
     Dosage: 2 TABS AND 1 TAB 1X A DAY FOR 14 D
     Dates: start: 20101026, end: 20101105

REACTIONS (4)
  - PYREXIA [None]
  - RASH ERYTHEMATOUS [None]
  - RASH GENERALISED [None]
  - URTICARIA [None]
